FAERS Safety Report 11097250 (Version 1)
Quarter: 2015Q2

REPORT INFORMATION
  Report Type: Spontaneous
  Country: US (occurrence: None)
  Receive Date: 20150506
  Receipt Date: 20150506
  Transmission Date: 20150821
  Serious: No
  Sender: FDA-Public Use
  Company Number: None

PATIENT
  Age: 55 Year
  Sex: Female

DRUGS (3)
  1. CELEBREX [Concomitant]
     Active Substance: CELECOXIB
  2. CAPECITABINE. [Suspect]
     Active Substance: CAPECITABINE
     Indication: RECTAL CANCER
     Dosage: 15000MG QAM?2000MG Q PM  DAILY X 21
     Route: 048
     Dates: start: 20150210
  3. CAPECITABINE. [Suspect]
     Active Substance: CAPECITABINE
     Indication: COLON CANCER
     Dosage: 15000MG QAM?2000MG Q PM  DAILY X 21
     Route: 048
     Dates: start: 20150210

REACTIONS (3)
  - Fatigue [None]
  - Stomatitis [None]
  - Dry skin [None]

NARRATIVE: CASE EVENT DATE: 201504
